FAERS Safety Report 7396497-8 (Version None)
Quarter: 2011Q1

REPORT INFORMATION
  Report Type: 
  Country: None (occurrence: None)
  Receive Date: 20110331
  Receipt Date: 20110331
  Transmission Date: 20110831
  Serious: Yes (Hospitalization)
  Sender: FDA-Public Use
  Company Number: None

PATIENT
  Sex: Female
  Weight: 115.8 kg

DRUGS (2)
  1. CARBOPLATIN [Suspect]
     Dosage: 282 MG
     Dates: end: 20110308
  2. TAXOL [Suspect]
     Dosage: 88 MG
     Dates: end: 20110308

REACTIONS (1)
  - PYREXIA [None]
